FAERS Safety Report 18173266 (Version 2)
Quarter: 2021Q4

REPORT INFORMATION
  Report Type: Spontaneous
  Country: BR (occurrence: BR)
  Receive Date: 20200819
  Receipt Date: 20211210
  Transmission Date: 20220303
  Serious: Yes (Other)
  Sender: FDA-Public Use
  Company Number: BR-ELI_LILLY_AND_COMPANY-BR202008003874

PATIENT
  Sex: Female

DRUGS (3)
  1. FORTEO [Suspect]
     Active Substance: TERIPARATIDE
     Indication: Osteoporosis
     Dosage: UNK, DAILY
     Route: 058
     Dates: start: 20190503
  2. FORTEO [Suspect]
     Active Substance: TERIPARATIDE
     Dosage: UNK, DAILY
     Route: 058
     Dates: end: 202107
  3. IMURAN [Concomitant]
     Active Substance: AZATHIOPRINE
     Indication: Autoimmune hepatitis
     Dosage: UNK, UNKNOWN
     Route: 065

REACTIONS (3)
  - Tuberculous pleurisy [Unknown]
  - Renal disorder [Unknown]
  - Liver disorder [Unknown]
